FAERS Safety Report 4536730-0 (Version None)
Quarter: 2004Q4

REPORT INFORMATION
  Report Type: 
  Country: None (occurrence: None)
  Receive Date: 20041223
  Receipt Date: 20041214
  Transmission Date: 20050328
  Serious: Yes (Disabling, Other)
  Sender: FDA-Public Use
  Company Number: FR-JNJFOC-20041106215

PATIENT
  Sex: Female

DRUGS (7)
  1. RISPERDAL [Suspect]
     Indication: PERSONALITY DISORDER
     Route: 049
  2. PLAQUENIL [Concomitant]
  3. CELEBREX [Concomitant]
  4. PARIET [Concomitant]
  5. DAFALGAN [Concomitant]
  6. XANAX [Concomitant]
  7. DEROXAT [Concomitant]

REACTIONS (3)
  - BLOOD CREATINE PHOSPHOKINASE INCREASED [None]
  - MYALGIA [None]
  - NEUROMUSCULAR BLOCKADE [None]
